FAERS Safety Report 7337903-4 (Version None)
Quarter: 2011Q1

REPORT INFORMATION
  Report Type: 
  Country: None (occurrence: None)
  Receive Date: 20110308
  Receipt Date: 20110228
  Transmission Date: 20110831
  Serious: Yes (Hospitalization)
  Sender: FDA-Public Use
  Company Number: SE-ROCHE-762965

PATIENT

DRUGS (4)
  1. FOLINIC ACID [Suspect]
     Dosage: DATE OF LAST DOSE 17 FEB 2011.
     Route: 065
     Dates: start: 20110203
  2. IRINOTECAN [Suspect]
     Dosage: DATE OF LAST DOSE 17 FEB 2011.
     Route: 065
     Dates: start: 20110203
  3. FLUOROURACIL [Suspect]
     Dosage: DATE OF LAST DOSE 17 FEB 2011.
     Route: 065
     Dates: start: 20110203
  4. BEVACIZUMAB [Suspect]
     Dosage: DATE OF LAST DOSE 17 FEB 2011
     Route: 065
     Dates: start: 20110203

REACTIONS (1)
  - OESOPHAGITIS [None]
